FAERS Safety Report 11165530 (Version 2)
Quarter: 2015Q2

REPORT INFORMATION
  Report Type: Spontaneous
  Country: DE (occurrence: DE)
  Receive Date: 20150604
  Receipt Date: 20150609
  Transmission Date: 20150821
  Serious: Yes (Hospitalization)
  Sender: FDA-Public Use
  Company Number: DE-NAPPMUNDI-DEU-2015-0016819

PATIENT
  Age: 75 Year
  Sex: Male

DRUGS (4)
  1. PALLADON 2,6MG HARTKAPSELN [Suspect]
     Active Substance: HYDROMORPHONE
     Indication: TUMOUR PAIN
     Dosage: 2.6 MG, 5/DAY
     Route: 048
     Dates: start: 201505
  2. PALLADON RETARD 8 MG [Suspect]
     Active Substance: HYDROMORPHONE HYDROCHLORIDE
     Indication: MUSCLE SPASMS
  3. PALLADON RETARD 8 MG [Suspect]
     Active Substance: HYDROMORPHONE HYDROCHLORIDE
     Indication: TUMOUR PAIN
     Dosage: 8 MG, BID
     Route: 048
     Dates: start: 201505
  4. PALLADON 2,6MG HARTKAPSELN [Suspect]
     Active Substance: HYDROMORPHONE
     Indication: MUSCLE SPASMS
     Dosage: 2.6 MG, PRN
     Route: 048
     Dates: start: 201505, end: 201505

REACTIONS (5)
  - Anxiety [Not Recovered/Not Resolved]
  - Dizziness [Not Recovered/Not Resolved]
  - Dysphonia [Not Recovered/Not Resolved]
  - Fatigue [Not Recovered/Not Resolved]
  - Drug ineffective [Unknown]

NARRATIVE: CASE EVENT DATE: 201505
